FAERS Safety Report 6160135-2 (Version None)
Quarter: 2009Q2

REPORT INFORMATION
  Report Type: 
  Country: None (occurrence: None)
  Receive Date: 20090420
  Receipt Date: 20090410
  Transmission Date: 20091009
  Serious: Yes (Hospitalization, Congenital Anomaly)
  Sender: FDA-Public Use
  Company Number: A0683113A

PATIENT
  Sex: Male

DRUGS (5)
  1. PAXIL [Suspect]
     Indication: PANIC ATTACK
     Dosage: 15MG PER DAY
     Dates: start: 19981101
  2. VITAMIN TAB [Concomitant]
     Dates: start: 19991101, end: 20000701
  3. MULTI-VITAMIN [Concomitant]
  4. FOLIC ACID [Concomitant]
     Dates: start: 19991101, end: 20000701
  5. IRON [Concomitant]
     Dates: start: 19991101, end: 20000701

REACTIONS (9)
  - CONGENITAL FOOT MALFORMATION [None]
  - CONGENITAL MUSCULOSKELETAL ANOMALY [None]
  - DRUG EXPOSURE DURING PREGNANCY [None]
  - DRUG EXPOSURE VIA BREAST MILK [None]
  - FOOT DEFORMITY [None]
  - LIMB MALFORMATION [None]
  - POLYDACTYLY [None]
  - SYNDACTYLY [None]
  - UNEQUAL LIMB LENGTH [None]
